FAERS Safety Report 5887009-6 (Version None)
Quarter: 2008Q3

REPORT INFORMATION
  Report Type: 
  Country: None (occurrence: None)
  Receive Date: 20080917
  Receipt Date: 20080912
  Transmission Date: 20090109
  Serious: Yes (Death, Hospitalization)
  Sender: FDA-Public Use
  Company Number: GB-WYE-G02072008

PATIENT
  Sex: Male

DRUGS (2)
  1. GEMTUZUMAB OZOGAMICIN [Suspect]
     Indication: ACUTE MYELOID LEUKAEMIA
     Dosage: UNKNOWN
     Dates: start: 20080806, end: 20080819
  2. ARA-C [Suspect]
     Dosage: UNKNOWN
     Dates: start: 20080806, end: 20080819

REACTIONS (5)
  - ANAEMIA [None]
  - CARDIOMYOPATHY [None]
  - DISEASE PROGRESSION [None]
  - INFECTION [None]
  - MYOCARDIAL INFARCTION [None]
